FAERS Safety Report 20060236 (Version 2)
Quarter: 2022Q1

REPORT INFORMATION
  Report Type: Spontaneous
  Country: FR (occurrence: FR)
  Receive Date: 20211111
  Receipt Date: 20220209
  Transmission Date: 20220424
  Serious: Yes (Life-Threatening, Hospitalization, Other)
  Sender: FDA-Public Use
  Company Number: FR-MLMSERVICE-20211026-3184623-1

PATIENT
  Age: 60 Year
  Sex: Female

DRUGS (1)
  1. OXALIPLATIN [Suspect]
     Active Substance: OXALIPLATIN
     Indication: Metastases to peritoneum
     Dates: start: 2020, end: 2020

REACTIONS (6)
  - Interstitial lung disease [Recovering/Resolving]
  - Drug hypersensitivity [Recovering/Resolving]
  - Atelectasis [Recovering/Resolving]
  - Chemical peritonitis [Recovering/Resolving]
  - Acute respiratory distress syndrome [Recovered/Resolved]
  - Encapsulating peritoneal sclerosis [Recovering/Resolving]

NARRATIVE: CASE EVENT DATE: 20200101
